FAERS Safety Report 22044046 (Version 1)
Quarter: 2023Q1

REPORT INFORMATION
  Report Type: Spontaneous
  Country: GB (occurrence: GB)
  Receive Date: 20230228
  Receipt Date: 20230228
  Transmission Date: 20230418
  Serious: Yes (Hospitalization, Other)
  Sender: FDA-Public Use
  Company Number: GB-MLMSERVICE-20230213-4102024-1

PATIENT
  Sex: Female

DRUGS (3)
  1. FLECAINIDE [Suspect]
     Active Substance: FLECAINIDE
     Indication: Atrial tachycardia
     Dosage: LOADING DOSE
     Route: 042
  2. FLECAINIDE [Suspect]
     Active Substance: FLECAINIDE
     Dosage: 2 MILLIGRAM/KILOGRAM, 3 TIMES A DAY
     Route: 048
  3. PROPRANOLOL [Concomitant]
     Active Substance: PROPRANOLOL HYDROCHLORIDE
     Indication: Atrial tachycardia
     Dosage: 2 MILLIGRAM/KILOGRAM, 3 TIMES A DAY
     Route: 048

REACTIONS (2)
  - Electrocardiogram QRS complex prolonged [Unknown]
  - Toxicity to various agents [Unknown]
